FAERS Safety Report 15510784 (Version 1)
Quarter: 2018Q4

REPORT INFORMATION
  Report Type: Spontaneous
  Country: US (occurrence: US)
  Receive Date: 20181016
  Receipt Date: 20181016
  Transmission Date: 20190205
  Serious: No
  Sender: FDA-Public Use
  Company Number: US-AMGEN-USASP2018014548

PATIENT
  Age: 51 Year
  Sex: Male
  Weight: 90.25 kg

DRUGS (4)
  1. CLARITIN [Concomitant]
     Active Substance: LORATADINE
     Indication: PROPHYLAXIS
     Dosage: UNK UNK, QD
     Dates: start: 201712
  2. NEULASTA [Suspect]
     Active Substance: PEGFILGRASTIM
     Indication: PRODUCT USED FOR UNKNOWN INDICATION
     Dosage: 6 MG, AFTER CHEMO
     Route: 058
     Dates: start: 20171127
  3. GEMZAR [Suspect]
     Active Substance: GEMCITABINE HYDROCHLORIDE
     Indication: PANCREATIC CARCINOMA
     Dosage: UNK UNK, Q3WK (1 DOES OF EACH ON DAY 1 AND DAY 8 OF A 21 DAY)
     Route: 065
     Dates: start: 20171121
  4. ABRAXANE [Suspect]
     Active Substance: PACLITAXEL
     Indication: PANCREATIC CARCINOMA
     Dosage: UNK UNK, Q3WK (1 DOES OF EACH ON DAY 1 AND DAY 7 OF A 21 DAY) FOR 6 MK
     Route: 065
     Dates: start: 20171121

REACTIONS (2)
  - Wrong technique in product usage process [Unknown]
  - Bone pain [Unknown]

NARRATIVE: CASE EVENT DATE: 2017
